FAERS Safety Report 5064309-3 (Version None)
Quarter: 2006Q3

REPORT INFORMATION
  Report Type: 
  Country: None (occurrence: None)
  Receive Date: 20060728
  Receipt Date: 20060721
  Transmission Date: 20061208
  Serious: Yes (Other)
  Sender: FDA-Public Use
  Company Number: PHRM2006DZ02141

PATIENT
  Age: 76 Year
  Sex: Male

DRUGS (1)
  1. FORADIL [Suspect]

REACTIONS (2)
  - ARTERIAL THROMBOSIS LIMB [None]
  - INTERMITTENT CLAUDICATION [None]
